FAERS Safety Report 17104005 (Version 1)
Quarter: 2019Q4

REPORT INFORMATION
  Report Type: Spontaneous
  Country: CA (occurrence: CA)
  Receive Date: 20191203
  Receipt Date: 20191203
  Transmission Date: 20200122
  Serious: Yes (Other)
  Sender: FDA-Public Use
  Company Number: NVSC2019CA053663

PATIENT
  Age: 9 Month
  Sex: Male

DRUGS (1)
  1. HYDROCORTISONE. [Suspect]
     Active Substance: HYDROCORTISONE
     Indication: RASH PRURITIC
     Dosage: UNK
     Route: 065

REACTIONS (1)
  - Idiopathic intracranial hypertension [Unknown]
